FAERS Safety Report 5647113-4 (Version None)
Quarter: 2008Q1

REPORT INFORMATION
  Report Type: 
  Country: None (occurrence: None)
  Receive Date: 20080228
  Receipt Date: 20080228
  Transmission Date: 20080703
  Serious: No
  Sender: FDA-Public Use
  Company Number: None

PATIENT
  Age: 25 Year

DRUGS (1)
  1. XENON XE 133 [Suspect]
     Dosage: INTRAVENOUS
     Route: 042
     Dates: start: 20080214, end: 20080214

REACTIONS (3)
  - ERYTHEMA [None]
  - NAUSEA [None]
  - VOMITING [None]
